FAERS Safety Report 17439039 (Version 1)
Quarter: 2020Q1

REPORT INFORMATION
  Report Type: Spontaneous
  Country: US (occurrence: US)
  Receive Date: 20200220
  Receipt Date: 20200220
  Transmission Date: 20200409
  Serious: No
  Sender: FDA-Public Use
  Company Number: US-TEVA-2020-US-1186632

PATIENT

DRUGS (1)
  1. ARMODIFINIL TEVA [Suspect]
     Active Substance: ARMODAFINIL
     Route: 065

REACTIONS (1)
  - Headache [Unknown]
